FAERS Safety Report 5269577-0 (Version None)
Quarter: 2007Q1

REPORT INFORMATION
  Report Type: 
  Country: None (occurrence: None)
  Receive Date: 20070320
  Receipt Date: 20070312
  Transmission Date: 20070707
  Serious: Yes (Life-Threatening, Hospitalization, Other)
  Sender: FDA-Public Use
  Company Number: US-RB-005522-07

PATIENT
  Sex: Female

DRUGS (2)
  1. SUBOXONE [Suspect]
     Dosage: PATIENT TOOK SUBOXONE IN A DETOX CENTER BETWEEN 1-12-2007 AND 1-29-2007, UNKNOWN TIME AND DOSE
     Route: 060
     Dates: start: 20070202, end: 20070309
  2. CIPRO [Concomitant]
     Indication: PYELONEPHRITIS
     Dosage: GIVEN IN EMERGENCY ROOM, UNKNOWN DOSE
     Route: 048
     Dates: start: 20070308

REACTIONS (8)
  - ENCEPHALOPATHY [None]
  - HEPATIC FAILURE [None]
  - JAUNDICE [None]
  - LEUKOCYTOSIS [None]
  - PYELONEPHRITIS [None]
  - URINARY TRACT INFECTION [None]
  - VOMITING [None]
  - WHITE BLOOD CELLS URINE POSITIVE [None]
